FAERS Safety Report 16100929 (Version 1)
Quarter: 2019Q1

REPORT INFORMATION
  Report Type: Spontaneous
  Country: US (occurrence: US)
  Receive Date: 20190321
  Receipt Date: 20190321
  Transmission Date: 20190418
  Serious: No
  Sender: FDA-Public Use
  Company Number: US-SA-2019SA072847

PATIENT
  Age: 55 Year
  Sex: Female

DRUGS (3)
  1. SOLIQUA 100/33 [Suspect]
     Active Substance: INSULIN GLARGINE\LIXISENATIDE
     Dosage: 50 U, QD
     Route: 065
     Dates: start: 20190304, end: 20190313
  2. SOLIQUA 100/33 [Suspect]
     Active Substance: INSULIN GLARGINE\LIXISENATIDE
     Dosage: 30 U
     Route: 065
  3. SOLOSTAR [Suspect]
     Active Substance: DEVICE
     Dosage: UNK
     Route: 065
     Dates: start: 20190304, end: 20190313

REACTIONS (1)
  - Urticaria [Unknown]
